FAERS Safety Report 9068349 (Version 1)
Quarter: 2013Q1

REPORT INFORMATION
  Report Type: Spontaneous
  Country: US (occurrence: None)
  Receive Date: 20130212
  Receipt Date: 20130212
  Transmission Date: 20140127
  Serious: Yes (Disabling, Other)
  Sender: FDA-Public Use
  Company Number: None

PATIENT
  Age: 55 Year
  Sex: Female
  Weight: 122.47 kg

DRUGS (1)
  1. HUMIRA [Suspect]

REACTIONS (9)
  - Pruritus [None]
  - Electric shock [None]
  - Paraesthesia [None]
  - Impaired driving ability [None]
  - Balance disorder [None]
  - Gait disturbance [None]
  - Pain in extremity [None]
  - Burning sensation [None]
  - Restlessness [None]
